FAERS Safety Report 6222237-1 (Version None)
Quarter: 2009Q2

REPORT INFORMATION
  Report Type: 
  Country: None (occurrence: None)
  Receive Date: 20090611
  Receipt Date: 20090528
  Transmission Date: 20091009
  Serious: Yes (Other)
  Sender: FDA-Public Use
  Company Number: FR-CELGENEUS-056-20484-09060215

PATIENT
  Sex: Female
  Weight: 72 kg

DRUGS (5)
  1. INNOHEP [Suspect]
     Route: 058
     Dates: start: 20050509
  2. INNOHEP [Suspect]
     Indication: PROPHYLAXIS OF ABORTION
     Route: 058
  3. INNOHEP [Suspect]
     Dosage: 10,000 IUU AND 10,000 IU
     Route: 058
  4. INNOHEP [Suspect]
     Dosage: 10,000 IU AND 14,000 IU
     Route: 058
  5. ACETYLSALICYLIC ACID SRT [Concomitant]
     Indication: DRUG USE FOR UNKNOWN INDICATION
     Route: 065

REACTIONS (5)
  - BLEEDING PERIPARTUM [None]
  - DRUG EXPOSURE DURING PREGNANCY [None]
  - PRE-ECLAMPSIA [None]
  - THROMBOCYTOPENIA [None]
  - URETHRAL PERFORATION [None]
